FAERS Safety Report 5018924-3 (Version None)
Quarter: 2006Q2

REPORT INFORMATION
  Report Type: 
  Country: None (occurrence: None)
  Receive Date: 20060606
  Receipt Date: 20060530
  Transmission Date: 20061013
  Serious: Yes (Death, Other)
  Sender: FDA-Public Use
  Company Number: CN-BRISTOL-MYERS SQUIBB COMPANY-13393624

PATIENT
  Age: 33 Year
  Sex: Female

DRUGS (6)
  1. METHOTREXATE [Suspect]
  2. AZATHIOPRINE [Suspect]
  3. CYCLOSPORINE [Suspect]
  4. SIROLIMUS [Suspect]
  5. PREDNISOLONE [Suspect]
  6. MYCOPHENOLATE MOFETIL [Suspect]

REACTIONS (4)
  - LYMPHOPROLIFERATIVE DISORDER [None]
  - MYELODYSPLASTIC SYNDROME [None]
  - PNEUMONIA [None]
  - TREATMENT RELATED SECONDARY MALIGNANCY [None]
